FAERS Safety Report 16663199 (Version 1)
Quarter: 2019Q3

REPORT INFORMATION
  Report Type: Spontaneous
  Country: CA (occurrence: CA)
  Receive Date: 20190802
  Receipt Date: 20190802
  Transmission Date: 20191004
  Serious: Yes (Hospitalization, Other)
  Sender: FDA-Public Use
  Company Number: CA-MYLANLABS-2019M1071925

PATIENT
  Age: 34 Year
  Sex: Female
  Weight: 70 kg

DRUGS (6)
  1. ROCURONIUM [Suspect]
     Active Substance: ROCURONIUM BROMIDE
     Dosage: 15 MINUTES AFTER THE FIRST DOSE, THE SECOND DOSE OF ROCURONIUM BROMIDE 5MG WAS ADMINISTERED. INTE...
     Route: 050
  2. ROCURONIUM [Suspect]
     Active Substance: ROCURONIUM BROMIDE
     Dosage: 5 MILLIGRAM
     Route: 050
  3. NORMAL SALINE [Suspect]
     Active Substance: SODIUM CHLORIDE
     Indication: PRODUCT USED FOR UNKNOWN INDICATION
     Route: 050
  4. ROCURONIUM [Suspect]
     Active Substance: ROCURONIUM BROMIDE
     Indication: FOETAL ANAEMIA
     Dosage: AT THE START OF IUT PROCEDURE, 6MG ROCURONIUM BROMIDE (0.6ML ROCURONIUM BROMIDE, 10 MG/ML) WAS DI...
     Route: 050
  5. ROCURONIUM [Suspect]
     Active Substance: ROCURONIUM BROMIDE
     Dosage: DUE TO CONTINUED FETAL MOVEMENT, A THIRD DOSE OF UNDILUTED ROCURONIUM BROMIDE 8MG WAS INJECTED MA...
     Route: 050
  6. LORAZEPAM. [Concomitant]
     Active Substance: LORAZEPAM
     Indication: ANXIOLYTIC THERAPY
     Route: 048

REACTIONS (8)
  - Paralysis [Recovered/Resolved]
  - Paraesthesia oral [Recovered/Resolved]
  - Hypoaesthesia oral [Recovered/Resolved]
  - Maternal exposure during pregnancy [Unknown]
  - Accidental exposure to product [Recovering/Resolving]
  - Dysphonia [Recovered/Resolved]
  - Neuromuscular blockade [Recovered/Resolved]
  - Respiratory distress [Recovering/Resolving]
